FAERS Safety Report 17167888 (Version 3)
Quarter: 2021Q1

REPORT INFORMATION
  Report Type: Spontaneous
  Country: US (occurrence: US)
  Receive Date: 20191218
  Receipt Date: 20210310
  Transmission Date: 20210419
  Serious: No
  Sender: FDA-Public Use
  Company Number: NVSC2019US072378

PATIENT
  Sex: Female

DRUGS (1)
  1. COSENTYX [Suspect]
     Active Substance: SECUKINUMAB
     Indication: PRODUCT USED FOR UNKNOWN INDICATION
     Dosage: UNK (LOADING DOSE)
     Route: 065

REACTIONS (5)
  - Swelling [Unknown]
  - Gait disturbance [Unknown]
  - Arthritis [Unknown]
  - Inflammation [Unknown]
  - Adverse event [Unknown]
